FAERS Safety Report 11539029 (Version 2)
Quarter: 2015Q4

REPORT INFORMATION
  Report Type: Spontaneous
  Country: US (occurrence: US)
  Receive Date: 20150923
  Receipt Date: 20151002
  Transmission Date: 20160304
  Serious: Yes (Other)
  Sender: FDA-Public Use
  Company Number: US-UCBSA-2015029644

PATIENT
  Sex: Female
  Weight: 87.98 kg

DRUGS (13)
  1. SYNTHROID [Concomitant]
     Active Substance: LEVOTHYROXINE SODIUM
     Indication: THYROID DISORDER
     Dosage: 0.125 ?G, ONCE DAILY (QD)
     Route: 048
  2. CIMZIA [Suspect]
     Active Substance: CERTOLIZUMAB PEGOL
     Indication: PSORIASIS
     Dosage: 200 MG, EV 2 WEEKS(QOW)
     Route: 058
     Dates: start: 201408, end: 2014
  3. CIMZIA [Suspect]
     Active Substance: CERTOLIZUMAB PEGOL
     Dosage: 200 MG, WEEKLY (QW)
     Route: 058
     Dates: start: 2014, end: 2014
  4. METFORMIN [Concomitant]
     Active Substance: METFORMIN HYDROCHLORIDE
     Indication: DIABETES MELLITUS
     Dosage: 2000MG A DAY (4 TABS OF 500MG) (1 IN AM; 1 AT DINNER AND 2 AT BEDTIME)
     Route: 048
  5. SIMVASTATIN. [Concomitant]
     Active Substance: SIMVASTATIN
     Indication: BLOOD CHOLESTEROL INCREASED
     Dosage: 40 MG, ONCE DAILY (QD) (STARTED 15-20 YEARS AGO)
     Route: 048
  6. CANAGLIFLOZIN [Concomitant]
     Active Substance: CANAGLIFLOZIN
     Indication: DIABETES MELLITUS
     Dosage: 100 MG, ONCE DAILY (QD)
     Route: 048
  7. CIMZIA [Suspect]
     Active Substance: CERTOLIZUMAB PEGOL
     Indication: PSORIATIC ARTHROPATHY
     Dosage: 200 MG, EV 2 WEEKS(QOW)
     Route: 058
     Dates: start: 2010, end: 2014
  8. GLIPIZIDE. [Concomitant]
     Active Substance: GLIPIZIDE
     Indication: PRODUCT USED FOR UNKNOWN INDICATION
     Dosage: 4 MG, 2X/DAY (BID)
  9. CIMZIA [Suspect]
     Active Substance: CERTOLIZUMAB PEGOL
     Dosage: 200 MG, WEEKLY (QW)
     Route: 058
     Dates: start: 2015, end: 2015
  10. ZITHROMAX [Concomitant]
     Active Substance: AZITHROMYCIN DIHYDRATE
     Indication: NASOPHARYNGITIS
     Dosage: UNK
     Dates: start: 201507
  11. GLIMEPIRIDE. [Concomitant]
     Active Substance: GLIMEPIRIDE
     Indication: DIABETES MELLITUS
     Dosage: 4 MG, 2X/DAY (BID)
     Route: 048
  12. CIMZIA [Suspect]
     Active Substance: CERTOLIZUMAB PEGOL
     Dosage: 400 MG, UNK
     Route: 058
     Dates: start: 2014, end: 2015
  13. CIMZIA [Suspect]
     Active Substance: CERTOLIZUMAB PEGOL
     Dosage: UNKNOWN DOSE
     Route: 058
     Dates: start: 2015, end: 20150905

REACTIONS (12)
  - Staphylococcal infection [Recovered/Resolved]
  - Laryngitis [Recovered/Resolved]
  - Peripheral swelling [Not Recovered/Not Resolved]
  - Conjunctivitis [Recovered/Resolved]
  - Tympanic membrane perforation [Recovered/Resolved]
  - Nasopharyngitis [Recovered/Resolved]
  - Drug dose omission [Unknown]
  - Psoriatic arthropathy [Not Recovered/Not Resolved]
  - Drug ineffective [Unknown]
  - Joint swelling [Not Recovered/Not Resolved]
  - Psoriasis [Recovered/Resolved]
  - Inappropriate schedule of drug administration [Unknown]

NARRATIVE: CASE EVENT DATE: 2014
